FAERS Safety Report 22344627 (Version 1)
Quarter: 2023Q2

REPORT INFORMATION
  Report Type: Spontaneous
  Country: ES (occurrence: ES)
  Receive Date: 20230519
  Receipt Date: 20230519
  Transmission Date: 20230722
  Serious: Yes (Other)
  Sender: FDA-Public Use
  Company Number: ES-SUN PHARMACEUTICAL INDUSTRIES LTD-2023RR-389312

PATIENT
  Age: 19 Year
  Sex: Female
  Weight: 45 kg

DRUGS (3)
  1. ACETAMINOPHEN [Suspect]
     Active Substance: ACETAMINOPHEN
     Indication: Depressive symptom
     Dosage: 15 GRAM, 15 TABS OF 1 G; IN TOTAL
     Route: 050
     Dates: start: 20220226
  2. LORAZEPAM [Suspect]
     Active Substance: LORAZEPAM
     Indication: Depressive symptom
     Dosage: 20 MILLIGRAM, IN TOTAL
     Dates: start: 20220226, end: 20220226
  3. Paroxetina 10 mg comprimido [Concomitant]
     Indication: Depressive symptom
     Dosage: 10 MILLIGRAM, UNK
     Route: 050
     Dates: start: 20220217

REACTIONS (1)
  - Hypocoagulable state [Recovered/Resolved]

NARRATIVE: CASE EVENT DATE: 20220226
